FAERS Safety Report 19472959 (Version 1)
Quarter: 2021Q2

REPORT INFORMATION
  Report Type: Spontaneous
  Country: CN (occurrence: CN)
  Receive Date: 20210629
  Receipt Date: 20210629
  Transmission Date: 20210717
  Serious: Yes (Hospitalization, Other)
  Sender: FDA-Public Use
  Company Number: CN-PFIZER INC-2021716849

PATIENT
  Age: 66 Year
  Sex: Female
  Weight: 44.7 kg

DRUGS (5)
  1. FRAGMIN [Suspect]
     Active Substance: DALTEPARIN SODIUM
     Indication: HEPATITIS C
  2. FRAGMIN [Suspect]
     Active Substance: DALTEPARIN SODIUM
     Indication: PORTAL HYPERTENSION
  3. FRAGMIN [Suspect]
     Active Substance: DALTEPARIN SODIUM
     Indication: PERIPHERAL T-CELL LYMPHOMA UNSPECIFIED
     Dosage: 0.2 ML, 1X/DAY
     Route: 058
     Dates: start: 20210127, end: 20210203
  4. FRAGMIN [Suspect]
     Active Substance: DALTEPARIN SODIUM
     Indication: ANTICOAGULANT THERAPY
  5. FRAGMIN [Suspect]
     Active Substance: DALTEPARIN SODIUM
     Indication: HEPATIC CIRRHOSIS

REACTIONS (4)
  - Abdominal pain lower [Unknown]
  - Upper gastrointestinal haemorrhage [Recovering/Resolving]
  - Abdominal discomfort [Unknown]
  - Haemoglobin decreased [Recovering/Resolving]

NARRATIVE: CASE EVENT DATE: 20210203
